FAERS Safety Report 13614122 (Version 3)
Quarter: 2017Q3

REPORT INFORMATION
  Report Type: Report from Study
  Country: US (occurrence: US)
  Receive Date: 20170606
  Receipt Date: 20170821
  Transmission Date: 20171127
  Serious: Yes (Death, Other)
  Sender: FDA-Public Use
  Company Number: PHHO2017US008872

PATIENT
  Sex: Female
  Weight: 86.3 kg

DRUGS (2)
  1. METOPROLOL. [Concomitant]
     Active Substance: METOPROLOL
     Indication: PRODUCT USED FOR UNKNOWN INDICATION
     Route: 065
  2. GSK1120212 [Suspect]
     Active Substance: TRAMETINIB
     Indication: BRAF GENE MUTATION
     Dosage: 12 MG, UNK
     Route: 048
     Dates: start: 20170414, end: 20170419

REACTIONS (1)
  - Ejection fraction decreased [Fatal]

NARRATIVE: CASE EVENT DATE: 20170419
